FAERS Safety Report 4622601-8 (Version None)
Quarter: 2005Q1

REPORT INFORMATION
  Report Type: 
  Country: None (occurrence: None)
  Receive Date: 20050330
  Receipt Date: 20050113
  Transmission Date: 20050727
  Serious: Yes (Hospitalization)
  Sender: FDA-Public Use
  Company Number: US-MERCK-0501USA01498

PATIENT
  Age: 78 Year
  Sex: Male

DRUGS (2)
  1. VIOXX [Suspect]
     Indication: ARTHRITIS
     Route: 048
     Dates: start: 19990501, end: 20040930
  2. VIOXX [Suspect]
     Indication: OSTEOARTHRITIS
     Route: 048
     Dates: start: 19990501, end: 20040930

REACTIONS (11)
  - ABDOMINAL HERNIA [None]
  - ACUTE PRERENAL FAILURE [None]
  - ANGINA UNSTABLE [None]
  - ATRIAL FIBRILLATION [None]
  - BRADYCARDIA [None]
  - CORONARY ARTERY DISEASE [None]
  - CORONARY ARTERY OCCLUSION [None]
  - HAEMOGLOBIN DECREASED [None]
  - HYPOPERFUSION [None]
  - MYOCARDIAL INFARCTION [None]
  - PARATHYROID TUMOUR BENIGN [None]
